FAERS Safety Report 5319066-X (Version None)
Quarter: 2007Q1

REPORT INFORMATION
  Report Type: 
  Country: None (occurrence: None)
  Receive Date: 20070202
  Receipt Date: 20060609
  Transmission Date: 20070707
  Serious: Yes (Other)
  Sender: FDA-Public Use
  Company Number: 252737

PATIENT
  Age: 37 Year
  Sex: Female

DRUGS (3)
  1. NOVOLOG [Suspect]
     Indication: DIABETES MELLITUS INSULIN-DEPENDENT
     Dosage: SUBCUTAN.-PUMP
     Route: 058
     Dates: start: 20060101
  2. VANCOMYCIN [Concomitant]
  3. TPN [Concomitant]

REACTIONS (1)
  - BLOOD GLUCOSE INCREASED [None]
